FAERS Safety Report 8997610 (Version 1)
Quarter: 2013Q1

REPORT INFORMATION
  Report Type: Spontaneous
  Country: US (occurrence: US)
  Receive Date: 20130104
  Receipt Date: 20130104
  Transmission Date: 20140127
  Serious: No
  Sender: FDA-Public Use
  Company Number: US-009507513-2012SP007386

PATIENT
  Age: 47 Year
  Sex: Male

DRUGS (3)
  1. CLARITIN-D 12 HOUR [Suspect]
     Indication: HYPERSENSITIVITY
     Dosage: 5 MG, QD
     Route: 048
     Dates: start: 20111202, end: 20111203
  2. CLARITIN-D 12 HOUR [Suspect]
     Indication: HEADACHE
     Dosage: 5 UNK, UNK
     Route: 048
     Dates: start: 2012
  3. CLARITIN-D 12 HOUR [Suspect]
     Indication: SINUS HEADACHE
     Dosage: 5 UNK, UNK
     Route: 048
     Dates: start: 2012

REACTIONS (1)
  - Somnolence [Unknown]
